FAERS Safety Report 19873540 (Version 1)
Quarter: 2021Q3

REPORT INFORMATION
  Report Type: Spontaneous
  Country: IT (occurrence: IT)
  Receive Date: 20210923
  Receipt Date: 20210923
  Transmission Date: 20211014
  Serious: Yes (Other)
  Sender: FDA-Public Use
  Company Number: IT-PFIZER INC-202101221938

PATIENT
  Age: 34 Year
  Sex: Female

DRUGS (2)
  1. SOLU?MEDROL [Suspect]
     Active Substance: METHYLPREDNISOLONE SODIUM SUCCINATE
     Indication: OPTIC NEURITIS
     Dosage: 500 MG, 1X/DAY
     Route: 041
     Dates: start: 20210819
  2. CLADRIBINE. [Suspect]
     Active Substance: CLADRIBINE
     Indication: MULTIPLE SCLEROSIS
     Dosage: 1.75 MG/KG FREQ:1 YEAR
     Route: 048
     Dates: start: 20200605

REACTIONS (1)
  - Disseminated varicella zoster virus infection [Recovering/Resolving]

NARRATIVE: CASE EVENT DATE: 20210828
